FAERS Safety Report 17888748 (Version 1)
Quarter: 2020Q2

REPORT INFORMATION
  Report Type: Spontaneous
  Country: US (occurrence: US)
  Receive Date: 20200612
  Receipt Date: 20200612
  Transmission Date: 20200714
  Serious: Yes (Other)
  Sender: FDA-Public Use
  Company Number: US-ASTRAZENECA-2020SE75127

PATIENT
  Age: 47 Year
  Sex: Female
  Weight: 93 kg

DRUGS (1)
  1. NEXIUM 24HR [Suspect]
     Active Substance: ESOMEPRAZOLE MAGNESIUM
     Indication: DYSPEPSIA
     Route: 048

REACTIONS (4)
  - Memory impairment [Unknown]
  - Drug ineffective [Unknown]
  - Brain neoplasm malignant [Unknown]
  - Migraine [Unknown]

NARRATIVE: CASE EVENT DATE: 2006
